FAERS Safety Report 15692284 (Version 1)
Quarter: 2018Q4

REPORT INFORMATION
  Report Type: Report from Study
  Country: None (occurrence: BR)
  Receive Date: 20181205
  Receipt Date: 20181205
  Transmission Date: 20190205
  Serious: Yes (Other)
  Sender: FDA-Public Use
  Company Number: BR-ABBVIE-18K-020-2370395-00

PATIENT
  Age: 52 Year
  Sex: Female
  Weight: 55 kg

DRUGS (7)
  1. EUTHYROX [Concomitant]
     Active Substance: LEVOTHYROXINE SODIUM
     Indication: THYROID DISORDER
     Dosage: TAKES WHEN FASTING
  2. CALCIUM [Concomitant]
     Active Substance: CALCIUM
     Indication: BONE DISORDER
  3. HUMIRA [Suspect]
     Active Substance: ADALIMUMAB
     Indication: RHEUMATOID ARTHRITIS
     Route: 058
     Dates: start: 20131014, end: 2018
  4. FOLIC ACID. [Concomitant]
     Active Substance: FOLIC ACID
     Indication: PROPHYLAXIS
  5. PREDNISONE. [Concomitant]
     Active Substance: PREDNISONE
     Indication: ARTHRALGIA
     Dosage: TAKES WHEN SHE PRESENTES THE REACTIONS
  6. METHOTREXATE. [Suspect]
     Active Substance: METHOTREXATE
     Indication: RHEUMATOID ARTHRITIS
     Route: 065
     Dates: end: 201810
  7. PREDNISONE. [Concomitant]
     Active Substance: PREDNISONE
     Indication: SWELLING

REACTIONS (11)
  - Blood creatinine abnormal [Recovering/Resolving]
  - Swelling [Unknown]
  - Gastric ulcer [Recovering/Resolving]
  - Renal disorder [Recovering/Resolving]
  - Renal impairment [Recovering/Resolving]
  - Weight decreased [Recovered/Resolved]
  - Arthritis [Recovered/Resolved]
  - Malaise [Unknown]
  - Gastritis [Not Recovered/Not Resolved]
  - Protein total increased [Unknown]
  - Retching [Unknown]

NARRATIVE: CASE EVENT DATE: 20150101
